FAERS Safety Report 8485684-3 (Version None)
Quarter: 2012Q3

REPORT INFORMATION
  Report Type: 
  Country: None (occurrence: None)
  Receive Date: 20120703
  Receipt Date: 20120625
  Transmission Date: 20120928
  Serious: No
  Sender: FDA-Public Use
  Company Number: US-JNJFOC-20120515548

PATIENT
  Sex: Male
  Weight: 68.04 kg

DRUGS (2)
  1. INVEGA [Suspect]
     Indication: SCHIZOPHRENIA, PARANOID TYPE
     Route: 048
     Dates: start: 20101110, end: 20101115
  2. COGENTIN [Concomitant]
     Route: 048

REACTIONS (1)
  - DYSTONIA [None]
